FAERS Safety Report 5024165-6 (Version None)
Quarter: 2006Q2

REPORT INFORMATION
  Report Type: 
  Country: None (occurrence: None)
  Receive Date: 20060613
  Receipt Date: 20060601
  Transmission Date: 20061013
  Serious: Yes (Hospitalization)
  Sender: FDA-Public Use
  Company Number: IT-JNJFOC-20060504539

PATIENT
  Sex: Female

DRUGS (6)
  1. REMICADE [Suspect]
     Route: 042
  2. REMICADE [Suspect]
     Indication: CROHN'S DISEASE
     Dosage: 6 INFUSIONS
     Route: 042
  3. AZATHIOPRINE [Concomitant]
     Route: 048
  4. CIPROFLOXACIN [Concomitant]
     Route: 048
  5. METRONIDAZOLE [Concomitant]
     Route: 065
  6. SALAZOPYRIN [Concomitant]
     Route: 048

REACTIONS (1)
  - GASTRIC CANCER [None]
